FAERS Safety Report 9652190 (Version 1)
Quarter: 2013Q4

REPORT INFORMATION
  Report Type: Spontaneous
  Country: US (occurrence: None)
  Receive Date: 20131025
  Receipt Date: 20131025
  Transmission Date: 20140711
  Serious: Yes (Hospitalization)
  Sender: FDA-Public Use
  Company Number: 2013P1020421

PATIENT
  Age: 67 Year
  Sex: Male

DRUGS (7)
  1. DIGOXIN [Suspect]
  2. IBUPROFEN [Suspect]
     Indication: GOUT
  3. ATENOLOL [Concomitant]
  4. HYDROXYZINE [Concomitant]
  5. TAMSULOSIN HCL [Concomitant]
  6. ASPIRIN (ACETYLSALICYLIC ACID) [Concomitant]
  7. ALLOPURINOL [Concomitant]

REACTIONS (11)
  - Decreased appetite [None]
  - Nausea [None]
  - Vomiting [None]
  - Vision blurred [None]
  - Feeling abnormal [None]
  - Blood potassium increased [None]
  - Renal failure chronic [None]
  - Blood sodium decreased [None]
  - Cardioactive drug level increased [None]
  - Atrial fibrillation [None]
  - Toxicity to various agents [None]
